FAERS Safety Report 5792941-8 (Version None)
Quarter: 2008Q2

REPORT INFORMATION
  Report Type: 
  Country: None (occurrence: None)
  Receive Date: 20080626
  Receipt Date: 20080626
  Transmission Date: 20081010
  Serious: Yes (Other)
  Sender: FDA-Public Use
  Company Number: None

PATIENT
  Sex: Female
  Weight: 79.3795 kg

DRUGS (1)
  1. KENALOG [Suspect]

REACTIONS (4)
  - ARTHRITIS [None]
  - DERMATITIS CONTACT [None]
  - INJECTION SITE REACTION [None]
  - SKIN STRIAE [None]
